FAERS Safety Report 10977833 (Version 1)
Quarter: 2015Q2

REPORT INFORMATION
  Report Type: Spontaneous
  Country: US (occurrence: None)
  Receive Date: 20150401
  Receipt Date: 20150401
  Transmission Date: 20150821
  Serious: Yes (Hospitalization, Disabling)
  Sender: FDA-Public Use
  Company Number: None

PATIENT
  Age: 57 Year
  Sex: Female
  Weight: 61.24 kg

DRUGS (3)
  1. DYSPORT [Suspect]
     Active Substance: ABOBOTULINUMTOXINA
     Indication: SKIN COSMETIC PROCEDURE
     Dosage: 1 DAY SEV. INJECTIONS
     Route: 030
     Dates: start: 20140624, end: 20140624
  2. VIVELLE DOT [Concomitant]
     Active Substance: ESTRADIOL
  3. LYSINE [Concomitant]
     Active Substance: LYSINE

REACTIONS (1)
  - Peripheral sensory neuropathy [None]

NARRATIVE: CASE EVENT DATE: 20140626
